FAERS Safety Report 15158425 (Version 1)
Quarter: 2018Q3

REPORT INFORMATION
  Report Type: Spontaneous
  Country: FR (occurrence: FR)
  Receive Date: 20180718
  Receipt Date: 20180718
  Transmission Date: 20181010
  Serious: Yes (Life-Threatening, Hospitalization)
  Sender: FDA-Public Use
  Company Number: FR-MYLANLABS-2018M1051296

PATIENT
  Age: 74 Year
  Sex: Female
  Weight: 84 kg

DRUGS (3)
  1. TARKA [Suspect]
     Active Substance: TRANDOLAPRIL\VERAPAMIL HYDROCHLORIDE
     Indication: HYPERTENSION
     Dosage: 1 DF, QD
     Route: 048
     Dates: start: 2016, end: 20180304
  2. ALLOPURINOL. [Concomitant]
     Active Substance: ALLOPURINOL
     Indication: PRODUCT USED FOR UNKNOWN INDICATION
     Dosage: UNK
     Route: 048
  3. LOPERAMIDE [Suspect]
     Active Substance: LOPERAMIDE
     Indication: DIARRHOEA
     Dosage: 2 MG, TOTAL
     Route: 048
     Dates: start: 20180304, end: 20180304

REACTIONS (4)
  - Macroglossia [Recovered/Resolved]
  - Laryngeal oedema [Recovered/Resolved]
  - Anaphylactic reaction [Recovered/Resolved]
  - Oedema mouth [Recovered/Resolved]

NARRATIVE: CASE EVENT DATE: 20180304
